FAERS Safety Report 13110511 (Version 1)
Quarter: 2017Q1

REPORT INFORMATION
  Report Type: Spontaneous
  Country: US (occurrence: US)
  Receive Date: 20170112
  Receipt Date: 20170112
  Transmission Date: 20170428
  Serious: Yes (Life-Threatening)
  Sender: FDA-Public Use
  Company Number: US-ROCHE-1444062

PATIENT
  Age: 75 Year
  Sex: Male
  Weight: 102.4 kg

DRUGS (9)
  1. ALTEPLASE [Suspect]
     Active Substance: ALTEPLASE
     Dosage: FREQUENCY: ONCE, INFUSED OVER ONE HOUR
     Route: 042
     Dates: start: 20140220, end: 20140220
  2. PANTOPRAZOLE [Concomitant]
     Active Substance: PANTOPRAZOLE SODIUM
     Dosage: TABLET, DELAYED RELEASE (E.C.)
     Route: 048
  3. ECONAZOLE NITRATE. [Concomitant]
     Active Substance: ECONAZOLE NITRATE
     Route: 061
  4. FOSINOPRIL [Concomitant]
     Active Substance: FOSINOPRIL
     Dosage: 1/2 TAB
     Route: 048
  5. ASPIRIN. [Concomitant]
     Active Substance: ASPIRIN
     Route: 065
  6. INDOMETHACIN. [Concomitant]
     Active Substance: INDOMETHACIN
     Indication: GOUT
     Dosage: THREE TIMES DAILY AS NEEDED FOR GOUT
     Route: 048
  7. LORATADINE. [Concomitant]
     Active Substance: LORATADINE
     Route: 048
  8. SIMVASTATIN. [Concomitant]
     Active Substance: SIMVASTATIN
     Route: 048
  9. ALTEPLASE [Suspect]
     Active Substance: ALTEPLASE
     Indication: CEREBROVASCULAR ACCIDENT
     Route: 040
     Dates: start: 20140220, end: 20140220

REACTIONS (1)
  - Angioedema [Recovering/Resolving]

NARRATIVE: CASE EVENT DATE: 20140220
